FAERS Safety Report 5084211-0 (Version None)
Quarter: 2006Q3

REPORT INFORMATION
  Report Type: 
  Country: None (occurrence: None)
  Receive Date: 20060821
  Receipt Date: 20030202
  Transmission Date: 20061208
  Serious: Yes (Other)
  Sender: FDA-Public Use
  Company Number: US-BRISTOL-MYERS SQUIBB COMPANY-13172481

PATIENT

DRUGS (1)
  1. TEQUIN [Suspect]

REACTIONS (1)
  - HYPERSENSITIVITY [None]
